FAERS Safety Report 7246428-6 (Version None)
Quarter: 2011Q1

REPORT INFORMATION
  Report Type: 
  Country: None (occurrence: None)
  Receive Date: 20110126
  Receipt Date: 20110112
  Transmission Date: 20110831
  Serious: Yes (Hospitalization)
  Sender: FDA-Public Use
  Company Number: ES-ELI_LILLY_AND_COMPANY-ES201003008363

PATIENT
  Sex: Female
  Weight: 52 kg

DRUGS (8)
  1. ADIRO [Concomitant]
     Dosage: 100 MG, DAILY (1/D)
     Route: 065
  2. NATECAL [Concomitant]
     Dosage: 10 MG, DAILY (1/D)
     Route: 065
  3. NITROGLYCERIN [Concomitant]
     Dosage: 10 MG, DAILY (1/D)
     Route: 065
  4. NEXIUM [Concomitant]
     Dosage: 20 MG, DAILY (1/D)
     Route: 065
  5. NAPROSYN [Concomitant]
     Dosage: 2 MG, DAILY (1/D)
     Route: 065
  6. FORTEO [Suspect]
     Indication: OSTEOPOROSIS
     Dosage: 20 UG, DAILY (1/D)
     Route: 058
     Dates: start: 20091201
  7. CARDYL [Concomitant]
     Dosage: 20 MG, DAILY (1/D)
     Route: 065
  8. PROCORALAN [Concomitant]
     Dosage: 2 D/F, DAILY (1/D)
     Route: 065

REACTIONS (2)
  - MYOCARDIAL INFARCTION [None]
  - ANGINA PECTORIS [None]
